FAERS Safety Report 11263322 (Version 1)
Quarter: 2015Q3

REPORT INFORMATION
  Report Type: Spontaneous
  Country: FR (occurrence: FR)
  Receive Date: 20150712
  Receipt Date: 20150712
  Transmission Date: 20151125
  Serious: Yes (Hospitalization)
  Sender: FDA-Public Use
  Company Number: FR-JNJFOC-20150707111

PATIENT
  Age: 62 Year
  Sex: Male

DRUGS (3)
  1. XARELTO [Suspect]
     Active Substance: RIVAROXABAN
     Indication: EMBOLISM VENOUS
     Route: 048
     Dates: start: 201501, end: 201503
  2. FENOFIBRATE. [Suspect]
     Active Substance: FENOFIBRATE
     Indication: HYPERCHOLESTEROLAEMIA
     Route: 048
     Dates: start: 2014, end: 201503
  3. XARELTO [Suspect]
     Active Substance: RIVAROXABAN
     Indication: PULMONARY EMBOLISM
     Route: 048
     Dates: start: 201501, end: 201503

REACTIONS (1)
  - Blood creatine phosphokinase MB increased [Recovering/Resolving]

NARRATIVE: CASE EVENT DATE: 201503
